FAERS Safety Report 10737469 (Version 1)
Quarter: 2015Q1

REPORT INFORMATION
  Report Type: Spontaneous
  Country: US (occurrence: None)
  Receive Date: 20150112
  Receipt Date: 20150112
  Transmission Date: 20150721
  Serious: Yes (Life-Threatening, Other)
  Sender: FDA-Public Use
  Company Number: 1404931

PATIENT
  Age: 75 Year
  Sex: Male
  Weight: 98.3 kg

DRUGS (1)
  1. ACTIVASE [Suspect]
     Active Substance: ALTEPLASE
     Indication: PRODUCT USED FOR UNKNOWN INDICATION

REACTIONS (4)
  - Angioedema [None]
  - NIH stroke scale score increased [None]
  - Aphasia [None]
  - Anaphylactic reaction [None]
